FAERS Safety Report 20303647 (Version 3)
Quarter: 2022Q3

REPORT INFORMATION
  Report Type: Spontaneous
  Country: CH (occurrence: CH)
  Receive Date: 20220106
  Receipt Date: 20220922
  Transmission Date: 20221026
  Serious: Yes (Hospitalization, Other)
  Sender: FDA-Public Use
  Company Number: None

PATIENT
  Age: 31 Year
  Sex: Female

DRUGS (23)
  1. ZOFRAN [Suspect]
     Active Substance: ONDANSETRON HYDROCHLORIDE
     Indication: Product used for unknown indication
     Dosage: 4 MG (12 MG IN TOTAL)
     Route: 042
     Dates: end: 201606
  2. ZOFRAN [Suspect]
     Active Substance: ONDANSETRON HYDROCHLORIDE
     Dosage: 4 MG, PRN
     Route: 042
     Dates: start: 201606, end: 2016
  3. CLONIDINE [Suspect]
     Active Substance: CLONIDINE
     Indication: Product used for unknown indication
     Dosage: 45 UG, TID
     Route: 042
     Dates: end: 201606
  4. ZINACEF [Suspect]
     Active Substance: CEFUROXIME SODIUM
     Indication: Product used for unknown indication
     Dosage: 3 G, QD (7500 MG IN TOTAL)
     Route: 042
     Dates: end: 201606
  5. METRONIDAZOLE [Suspect]
     Active Substance: METRONIDAZOLE
     Indication: Product used for unknown indication
     Dosage: 500 MG, BID (2,500 MG IN TOTAL)
     Route: 042
     Dates: end: 201606
  6. DEXAMETHASONE [Suspect]
     Active Substance: DEXAMETHASONE
     Indication: Product used for unknown indication
     Dosage: UNK (8 MG IN TOTAL)
     Route: 042
     Dates: end: 201606
  7. PROPOFOL [Suspect]
     Active Substance: PROPOFOL
     Indication: Product used for unknown indication
     Dosage: 400 MG (IN TOTAL)
     Route: 042
     Dates: end: 201606
  8. KETAMINE [Suspect]
     Active Substance: KETAMINE
     Indication: Product used for unknown indication
     Dosage: 40 MG (IN TOTAL)
     Route: 042
     Dates: end: 201606
  9. SUFENTA [Suspect]
     Active Substance: SUFENTANIL CITRATE
     Indication: Product used for unknown indication
     Dosage: 30 UG (SEVERAL TIMES)
     Route: 042
     Dates: end: 201606
  10. ROCURONIUM BROMIDE [Suspect]
     Active Substance: ROCURONIUM BROMIDE
     Indication: Product used for unknown indication
     Dosage: 68 MG (IN TOTAL)
     Route: 042
     Dates: end: 201606
  11. SUCCINYLCHOLINE CHLORIDE [Suspect]
     Active Substance: SUCCINYLCHOLINE CHLORIDE
     Indication: Product used for unknown indication
     Dosage: 150 UG (IN TOTAL)
     Route: 042
     Dates: end: 201606
  12. LIDOCAINE [Suspect]
     Active Substance: LIDOCAINE
     Indication: Product used for unknown indication
     Dosage: 127 MG (1 %, IN TOTAL)
     Route: 042
     Dates: end: 201606
  13. DROPERIDOL [Suspect]
     Active Substance: DROPERIDOL
     Indication: Product used for unknown indication
     Dosage: 0.5 MG PER DOSE (1 MG IN TOTAL)
     Route: 042
     Dates: end: 201606
  14. MORPHINE [Suspect]
     Active Substance: MORPHINE
     Indication: Product used for unknown indication
     Dosage: 3 MG, BID
     Route: 042
     Dates: end: 201606
  15. METHYLENE BLUE ANHYDROUS [Suspect]
     Active Substance: METHYLENE BLUE ANHYDROUS
     Indication: Product used for unknown indication
     Dosage: 100 MG (IN TOTAL)
     Route: 042
     Dates: end: 201606
  16. INDOCYANINE GREEN [Suspect]
     Active Substance: INDOCYANINE GREEN
     Indication: Product used for unknown indication
     Dosage: 7.5 MG (IN TOTAL)
     Route: 042
     Dates: end: 201606
  17. PERFALGAN [Concomitant]
     Active Substance: ACETAMINOPHEN
     Indication: Product used for unknown indication
     Dosage: UNK
     Route: 042
  18. BRIDION [Concomitant]
     Active Substance: SUGAMMADEX
     Indication: Product used for unknown indication
     Dosage: UNK
     Route: 042
  19. NEXIUM [Concomitant]
     Active Substance: ESOMEPRAZOLE MAGNESIUM
     Indication: Product used for unknown indication
     Dosage: UNK
     Route: 042
  20. NOVORAPID [Concomitant]
     Active Substance: INSULIN ASPART
     Indication: Product used for unknown indication
     Dosage: UNK
     Route: 058
  21. ENOXAPARIN SODIUM [Concomitant]
     Active Substance: ENOXAPARIN SODIUM
     Indication: Product used for unknown indication
     Dosage: UNK (2 INJECTIONS)
     Route: 065
     Dates: start: 20160614, end: 20160614
  22. LITHIUM [Concomitant]
     Active Substance: LITHIUM
     Indication: Product used for unknown indication
     Dosage: 1000 MG (EXACT DOSAGE UNKNOWN)
     Route: 065
  23. SEROQUEL [Concomitant]
     Active Substance: QUETIAPINE FUMARATE
     Indication: Product used for unknown indication
     Dosage: 200 MG (EXACT DOSAGE UNKNOWN)
     Route: 065

REACTIONS (2)
  - Thrombocytopenia [Recovered/Resolved]
  - Liver function test increased [Recovered/Resolved]

NARRATIVE: CASE EVENT DATE: 20160614
